FAERS Safety Report 9435604 (Version 4)
Quarter: 2013Q4

REPORT INFORMATION
  Report Type: Spontaneous
  Country: CA (occurrence: CA)
  Receive Date: 20130801
  Receipt Date: 20131003
  Transmission Date: 20140711
  Serious: Yes (Other)
  Sender: FDA-Public Use
  Company Number: CA-BAXTER-2013BAX029534

PATIENT
  Age: 70 Year
  Sex: Male
  Weight: 77 kg

DRUGS (5)
  1. GAMMAGARD LIQUID -IMMUNE GLOBULIN INTRAVENOUS (HUMAN), [IGIV] 10% [Suspect]
     Indication: MYELOPATHY
     Route: 042
     Dates: start: 20130616, end: 20130619
  2. GAMMAGARD LIQUID -IMMUNE GLOBULIN INTRAVENOUS (HUMAN), [IGIV] 10% [Suspect]
     Indication: OFF LABEL USE
     Route: 042
     Dates: start: 20130701, end: 20130704
  3. GAMMAGARD LIQUID -IMMUNE GLOBULIN INTRAVENOUS (HUMAN), [IGIV] 10% [Suspect]
     Route: 042
     Dates: start: 20130730, end: 20130730
  4. GAMMAGARD LIQUID -IMMUNE GLOBULIN INTRAVENOUS (HUMAN), [IGIV] 10% [Suspect]
     Route: 042
     Dates: start: 20130731, end: 20130731
  5. GAMMAGARD LIQUID -IMMUNE GLOBULIN INTRAVENOUS (HUMAN), [IGIV] 10% [Suspect]
     Route: 042
     Dates: start: 20130801, end: 20130801

REACTIONS (11)
  - Haemoglobin decreased [Unknown]
  - Acute haemolytic transfusion reaction [Recovering/Resolving]
  - Antibody test positive [Recovering/Resolving]
  - Antibody test positive [Recovering/Resolving]
  - Coombs direct test [Recovering/Resolving]
  - Coombs direct test positive [Recovering/Resolving]
  - Red blood cell spherocytes present [Recovering/Resolving]
  - Haemolysis [Unknown]
  - Haemoglobin decreased [Recovering/Resolving]
  - Haemoglobin decreased [Unknown]
  - Haemoglobin decreased [Unknown]
